FAERS Safety Report 15795676 (Version 1)
Quarter: 2019Q1

REPORT INFORMATION
  Report Type: Spontaneous
  Country: CA (occurrence: CA)
  Receive Date: 20190107
  Receipt Date: 20190107
  Transmission Date: 20190417
  Serious: Yes (Life-Threatening, Hospitalization, Other)
  Sender: FDA-Public Use
  Company Number: CA-GILEAD-2019-0383177

PATIENT
  Age: 48 Year
  Sex: Male

DRUGS (1)
  1. STRIBILD [Suspect]
     Active Substance: COBICISTAT\ELVITEGRAVIR\EMTRICITABINE\TENOFOVIR DISOPROXIL FUMARATE
     Indication: ANTIRETROVIRAL THERAPY
     Dosage: 1 DF, QD
     Route: 065

REACTIONS (7)
  - Glomerular filtration rate decreased [Unknown]
  - Fanconi syndrome [Unknown]
  - Ventricular tachycardia [Unknown]
  - Glycosuria [Unknown]
  - Blood creatinine increased [Unknown]
  - Renal injury [Unknown]
  - Cardiac arrest [Unknown]
